FAERS Safety Report 4759709-2 (Version None)
Quarter: 2005Q3

REPORT INFORMATION
  Report Type: 
  Country: None (occurrence: None)
  Receive Date: 20050826
  Receipt Date: 20050506
  Transmission Date: 20060218
  Serious: No
  Sender: FDA-Public Use
  Company Number: 214311

PATIENT
  Age: 34 Year
  Sex: Male

DRUGS (1)
  1. RAPTIVA [Suspect]
     Indication: PSORIASIS
     Dosage: 1.25 MG, SUBCUTANEOUS
     Route: 058
     Dates: start: 20050503

REACTIONS (3)
  - ACCIDENTAL OVERDOSE [None]
  - MIGRAINE [None]
  - VOMITING [None]
